FAERS Safety Report 13844706 (Version 1)
Quarter: 2017Q3

REPORT INFORMATION
  Report Type: Spontaneous
  Country: BR (occurrence: BR)
  Receive Date: 20170808
  Receipt Date: 20170808
  Transmission Date: 20171127
  Serious: Yes (Other)
  Sender: FDA-Public Use
  Company Number: BR-BAYER-2017-150927

PATIENT
  Sex: Male

DRUGS (1)
  1. MAGNEVISTAN [Suspect]
     Active Substance: GADOPENTETATE DIMEGLUMINE
     Indication: NUCLEAR MAGNETIC RESONANCE IMAGING

REACTIONS (2)
  - Rash [Recovered/Resolved]
  - Contrast media allergy [Recovered/Resolved]

NARRATIVE: CASE EVENT DATE: 20170726
